FAERS Safety Report 9451230 (Version 1)
Quarter: 2013Q3

REPORT INFORMATION
  Report Type: Spontaneous
  Country: GB (occurrence: GB)
  Receive Date: 20130809
  Receipt Date: 20130809
  Transmission Date: 20140515
  Serious: Yes (Disabling)
  Sender: FDA-Public Use
  Company Number: GB-SANTEN INC.-INC-13-000204

PATIENT
  Age: 63 Year
  Sex: Male

DRUGS (8)
  1. OFTAQUIX [Suspect]
  2. CARDICOR [Suspect]
     Dates: start: 20130724, end: 20130726
  3. ASPIRIN [Suspect]
     Dates: start: 20130724
  4. CLARITHROMYCIN [Suspect]
     Dates: start: 20130724
  5. METFORMIN SR [Concomitant]
     Dates: end: 20130723
  6. PERINDOPRIL [Concomitant]
     Dates: end: 20130723
  7. PARACETAMOL [Concomitant]
     Dates: end: 20130723
  8. AMIODARONE [Concomitant]
     Dates: end: 20130723

REACTIONS (1)
  - Angioedema [Unknown]
